FAERS Safety Report 16880356 (Version 6)
Quarter: 2020Q1

REPORT INFORMATION
  Report Type: Report from Study
  Country: RU (occurrence: RU)
  Receive Date: 20191003
  Receipt Date: 20200102
  Transmission Date: 20200409
  Serious: Yes (Hospitalization)
  Sender: FDA-Public Use
  Company Number: RU-EISAI MEDICAL RESEARCH-EC-2019-062903

PATIENT
  Age: 60 Year
  Sex: Male
  Weight: 62 kg

DRUGS (7)
  1. ENALAPRIL [Concomitant]
     Active Substance: ENALAPRIL
  2. LENVATINIB [Suspect]
     Active Substance: LENVATINIB
     Dosage: DOSE DECREASED
     Route: 048
     Dates: start: 20190826, end: 20190927
  3. INDAPAMIDE. [Concomitant]
     Active Substance: INDAPAMIDE
  4. LENVATINIB [Suspect]
     Active Substance: LENVATINIB
     Indication: PAPILLARY THYROID CANCER
     Route: 048
     Dates: start: 20180215, end: 20190825
  5. CAPTOPRIL. [Concomitant]
     Active Substance: CAPTOPRIL
  6. LEVOTHYROXINE SODIUM. [Concomitant]
     Active Substance: LEVOTHYROXINE SODIUM
  7. AMLODIPINE [Concomitant]
     Active Substance: AMLODIPINE BESYLATE

REACTIONS (2)
  - Weight decreased [Recovered/Resolved]
  - Renal impairment [Recovered/Resolved]

NARRATIVE: CASE EVENT DATE: 20190918
